FAERS Safety Report 7640897-5 (Version None)
Quarter: 2011Q3

REPORT INFORMATION
  Report Type: 
  Country: None (occurrence: None)
  Receive Date: 20110728
  Receipt Date: 20110728
  Transmission Date: 20111222
  Serious: Yes (Hospitalization)
  Sender: FDA-Public Use
  Company Number: None

PATIENT
  Sex: Female
  Weight: 92.532 kg

DRUGS (9)
  1. LISINOPRIL [Concomitant]
  2. OXYBUTYNIN [Concomitant]
  3. LEVETIRACETAM [Concomitant]
  4. ESTRADIOL [Concomitant]
  5. LOVASTATIN [Concomitant]
  6. BETASERON [Concomitant]
  7. AMPYRA [Suspect]
     Indication: GAIT DISTURBANCE
     Dosage: 10 MG
     Route: 048
     Dates: start: 20110223, end: 20110629
  8. AMANTADINE HCL [Concomitant]
  9. PARAXETINE [Concomitant]

REACTIONS (4)
  - UNRESPONSIVE TO STIMULI [None]
  - JOINT DISLOCATION [None]
  - GRAND MAL CONVULSION [None]
  - CONFUSIONAL STATE [None]
